FAERS Safety Report 6216547-1 (Version None)
Quarter: 2009Q2

REPORT INFORMATION
  Report Type: 
  Country: None (occurrence: None)
  Receive Date: 20090605
  Receipt Date: 20090519
  Transmission Date: 20091009
  Serious: Yes (Death)
  Sender: FDA-Public Use
  Company Number: JP-GENENTECH-283432

PATIENT
  Age: 78 Year
  Sex: Male

DRUGS (6)
  1. TRASTUZUMAB [Suspect]
     Indication: BREAST CANCER METASTATIC
     Dosage: 4 MG/KG, 1/WEEK
     Route: 065
     Dates: start: 20060101
  2. TRASTUZUMAB [Suspect]
     Dosage: 2 MG/KG, 1/WEEK
  3. PACLITAXEL [Concomitant]
     Indication: BREAST CANCER METASTATIC
     Dosage: 80 MG/M2, UNK
  4. VINORELBINE [Concomitant]
     Indication: LUNG NEOPLASM MALIGNANT
     Dosage: UNK
  5. DOXORUBICIN HCL [Concomitant]
     Indication: DISEASE PROGRESSION
     Dosage: 60 MG/M2, Q3W
  6. CYCLOPHOSPHAMIDE [Concomitant]
     Indication: DISEASE PROGRESSION
     Dosage: 600 MG/M2, Q3W

REACTIONS (1)
  - DISEASE PROGRESSION [None]
